FAERS Safety Report 4293046-8 (Version None)
Quarter: 2004Q1

REPORT INFORMATION
  Report Type: 
  Country: None (occurrence: None)
  Receive Date: 20040210
  Receipt Date: 20040129
  Transmission Date: 20041129
  Serious: Yes (Other)
  Sender: FDA-Public Use
  Company Number: US-JNJFOC-20040106134

PATIENT

DRUGS (1)
  1. REMICADE [Suspect]
     Indication: DRUG USE FOR UNKNOWN INDICATION
     Dosage: INTRAVENOUS
     Route: 042

REACTIONS (2)
  - PNEUMONIA [None]
  - RESPIRATORY FAILURE [None]
